FAERS Safety Report 6721810-1 (Version None)
Quarter: 2010Q2

REPORT INFORMATION
  Report Type: 
  Country: None (occurrence: None)
  Receive Date: 20100510
  Receipt Date: 20091209
  Transmission Date: 20101027
  Serious: Yes (Other)
  Sender: FDA-Public Use
  Company Number: LEO-2010-00322

PATIENT
  Age: 45 Year
  Sex: Male

DRUGS (2)
  1. INNOHEP [Suspect]
     Indication: THROMBOSIS PROPHYLAXIS
     Dosage: 4500 IU, SUBCUTANEOUS
     Route: 058
     Dates: start: 20080827, end: 20080902
  2. DI ANTALVIC (PARACETAMOL, DEXTROPROPOSYPHENE HYDROCHLORIDE) [Concomitant]

REACTIONS (2)
  - HAEMARTHROSIS [None]
  - OFF LABEL USE [None]
